FAERS Safety Report 25596521 (Version 1)
Quarter: 2025Q3

REPORT INFORMATION
  Report Type: Spontaneous
  Country: IN (occurrence: IN)
  Receive Date: 20250723
  Receipt Date: 20250723
  Transmission Date: 20251020
  Serious: Yes (Congenital Anomaly, Other)
  Sender: GLAND PHARMA LTD
  Company Number: IN-GLANDPHARMA-IN-2025GLNLIT01605

PATIENT

DRUGS (3)
  1. DOXORUBICIN HYDROCHLORIDE [Suspect]
     Active Substance: DOXORUBICIN HYDROCHLORIDE
     Indication: Foetal exposure during pregnancy
     Route: 064
  2. DOCETAXEL [Suspect]
     Active Substance: DOCETAXEL
     Indication: Foetal exposure during pregnancy
     Route: 064
  3. CYCLOPHOSPHAMIDE [Suspect]
     Active Substance: CYCLOPHOSPHAMIDE
     Indication: Foetal exposure during pregnancy
     Route: 064

REACTIONS (3)
  - Congenital central nervous system anomaly [Unknown]
  - Limb hypoplasia congenital [Unknown]
  - Foetal exposure during pregnancy [Unknown]
